FAERS Safety Report 7251728-X (Version None)
Quarter: 2011Q1

REPORT INFORMATION
  Report Type: 
  Country: None (occurrence: None)
  Receive Date: 20110128
  Receipt Date: 20110119
  Transmission Date: 20110831
  Serious: Yes (Hospitalization, Disabling, Other)
  Sender: FDA-Public Use
  Company Number: US-MERCK-0712USA08165

PATIENT
  Age: 83 Year
  Sex: Female

DRUGS (1)
  1. FOSAMAX [Suspect]
     Indication: OSTEOPENIA
     Route: 048
     Dates: start: 20011001, end: 20061001

REACTIONS (20)
  - BONE DISORDER [None]
  - BONE DENSITY DECREASED [None]
  - WRIST FRACTURE [None]
  - ACTINIC KERATOSIS [None]
  - URINARY INCONTINENCE [None]
  - POSITIVE ROMBERGISM [None]
  - CAROTID BRUIT [None]
  - FRACTURE [None]
  - OSTEONECROSIS OF JAW [None]
  - ORAL DISORDER [None]
  - NAUSEA [None]
  - INFECTION [None]
  - GLUCOSE TOLERANCE IMPAIRED [None]
  - DIARRHOEA [None]
  - DRUG HYPERSENSITIVITY [None]
  - NERVE INJURY [None]
  - TREATMENT FAILURE [None]
  - FALL [None]
  - VERTIGO [None]
  - TYPE 2 DIABETES MELLITUS [None]
